FAERS Safety Report 8059205-3 (Version None)
Quarter: 2012Q1

REPORT INFORMATION
  Report Type: 
  Country: None (occurrence: None)
  Receive Date: 20120120
  Receipt Date: 20120113
  Transmission Date: 20120608
  Serious: Yes (Hospitalization, Disabling, Other)
  Sender: FDA-Public Use
  Company Number: DK-ABBOTT-11P-044-0865333-00

PATIENT
  Sex: Male
  Weight: 88 kg

DRUGS (15)
  1. VICTOZA [Concomitant]
     Indication: DIABETES MELLITUS
     Dosage: 0.2 ML
     Route: 058
  2. ACETAMINOPHEN [Concomitant]
     Indication: PAIN
     Route: 048
  3. PAROXETINE HCL [Concomitant]
     Indication: PRODUCT USED FOR UNKNOWN INDICATION
     Route: 048
  4. PLAVIX [Concomitant]
     Indication: CEREBROVASCULAR ACCIDENT
     Route: 048
  5. SIMVASTATIN [Concomitant]
     Indication: HYPERCHOLESTEROLAEMIA
     Route: 048
  6. GLUCOSAMIN [Concomitant]
     Indication: OSTEOARTHRITIS
     Route: 048
  7. BRICANYL [Concomitant]
     Indication: PRODUCT USED FOR UNKNOWN INDICATION
  8. CLOPIDOGREL [Concomitant]
     Indication: CEREBROVASCULAR ACCIDENT
  9. METOPROLOL SUCCINATE [Concomitant]
     Indication: HYPERTENSION
     Route: 048
  10. HUMIRA [Suspect]
     Indication: ANKYLOSING SPONDYLITIS
     Dates: start: 20090810, end: 20110823
  11. TRAMADOL HCL [Concomitant]
     Indication: PAIN
     Route: 048
  12. SPIRIVA [Concomitant]
     Indication: PRODUCT USED FOR UNKNOWN INDICATION
  13. METFORMIN HCL [Concomitant]
     Indication: DIABETES MELLITUS
     Route: 048
  14. RAMIPRIL [Concomitant]
     Indication: HYPERTENSION
     Dosage: 10MG DAILY
     Route: 048
  15. LAMOTRIGINE [Concomitant]
     Indication: PRODUCT USED FOR UNKNOWN INDICATION
     Route: 048

REACTIONS (4)
  - LIMB OPERATION [None]
  - MULTIPLE SCLEROSIS [None]
  - CEREBROVASCULAR ACCIDENT [None]
  - INFARCTION [None]
